FAERS Safety Report 5462950-7 (Version None)
Quarter: 2007Q3

REPORT INFORMATION
  Report Type: 
  Country: None (occurrence: None)
  Receive Date: 20070920
  Receipt Date: 20070910
  Transmission Date: 20080115
  Serious: Yes (Hospitalization)
  Sender: FDA-Public Use
  Company Number: NL-ASTRAZENECA-2007AC01700

PATIENT

DRUGS (3)
  1. SYMBICORT [Suspect]
     Indication: ASTHMA
     Dosage: 160/4.5 UG
     Route: 055
  2. SYMBICORT [Suspect]
     Dosage: 160/4.5 UG PRN
     Route: 055
  3. BRICANYL [Concomitant]
     Route: 055

REACTIONS (1)
  - DYSPNOEA [None]
